FAERS Safety Report 5839230-0 (Version None)
Quarter: 2008Q3

REPORT INFORMATION
  Report Type: 
  Country: None (occurrence: None)
  Receive Date: 20080806
  Receipt Date: 20080721
  Transmission Date: 20090109
  Serious: Yes (Other)
  Sender: FDA-Public Use
  Company Number: 8035093

PATIENT
  Age: 4 Year
  Sex: Male

DRUGS (5)
  1. METHYLPHENIDATE HCL [Suspect]
     Indication: ATTENTION DEFICIT/HYPERACTIVITY DISORDER
     Dosage: 5 MG /D PO
     Route: 048
  2. METHYLPHENIDATE HCL [Suspect]
     Indication: ATTENTION DEFICIT/HYPERACTIVITY DISORDER
     Dosage: 10 MG /D PO
     Route: 048
  3. VALPROIC ACID [Suspect]
     Indication: CONVULSION
     Dosage: 1000 MG /D PO
     Route: 048
  4. VALPROIC ACID [Suspect]
     Indication: CONVULSION
     Dosage: 1250 MG /D PO
     Route: 048
  5. VALPROIC ACID [Suspect]
     Indication: CONVULSION
     Dosage: 1125 MG /D PO
     Route: 048

REACTIONS (4)
  - AGITATION [None]
  - BRUXISM [None]
  - DYSKINESIA [None]
  - LEARNING DISABILITY [None]
